FAERS Safety Report 7682449-7 (Version None)
Quarter: 2011Q3

REPORT INFORMATION
  Report Type: 
  Country: None (occurrence: None)
  Receive Date: 20110810
  Receipt Date: 20110804
  Transmission Date: 20111222
  Serious: Yes (Hospitalization)
  Sender: FDA-Public Use
  Company Number: LEO-2011-00601

PATIENT
  Sex: Female

DRUGS (1)
  1. INNOHEP [Suspect]
     Indication: PROPHYLAXIS
     Dosage: 3500 IU, SUBCUTANEOUS
     Route: 058

REACTIONS (2)
  - INCORRECT DRUG ADMINISTRATION DURATION [None]
  - PULMONARY EMBOLISM [None]
